FAERS Safety Report 10290052 (Version 2)
Quarter: 2014Q1

REPORT INFORMATION
  Report Type: Spontaneous
  Country: US (occurrence: None)
  Receive Date: 20120817
  Receipt Date: 20130815
  Transmission Date: 20141002
  Serious: Yes (Hospitalization, Other)
  Sender: FDA-Public Use
  Company Number: ADR-2012-00832

PATIENT
  Sex: Male

DRUGS (3)
  1. LIORESAL INTRATHECAL (BACLOFEN INHECTION) 2000 MCG/ML [Suspect]
     Indication: MUSCLE SPASTICITY
  2. LIORESAL INTRATHECAL (BACLOFEN INHECTION) 2000 MCG/ML [Suspect]
  3. LIORESAL INTRATHECAL (BACLOFEN INHECTION) 2000 MCG/ML [Suspect]
     Indication: BRAIN INJURY

REACTIONS (6)
  - Arthralgia [None]
  - Joint stiffness [None]
  - Pain in extremity [None]
  - Back pain [None]
  - Hypokinesia [None]
  - Infection [None]
